FAERS Safety Report 9173417 (Version 2)
Quarter: 2013Q2

REPORT INFORMATION
  Report Type: Spontaneous
  Country: US (occurrence: US)
  Receive Date: 20130320
  Receipt Date: 20130409
  Transmission Date: 20140414
  Serious: No
  Sender: FDA-Public Use
  Company Number: US-BAYER-2013-034576

PATIENT
  Age: 69 Year
  Sex: Female
  Weight: 65.76 kg

DRUGS (2)
  1. ALEVE TABLET [Suspect]
     Indication: BONE PAIN
     Dosage: 2 DF, BID
  2. ALEVE TABLET [Suspect]
     Indication: ARTHRITIS

REACTIONS (2)
  - Drug effect incomplete [None]
  - Overdose [None]
